FAERS Safety Report 14325793 (Version 7)
Quarter: 2023Q4

REPORT INFORMATION
  Report Type: Report from Study
  Country: PT (occurrence: PT)
  Receive Date: 20171226
  Receipt Date: 20231025
  Transmission Date: 20240109
  Serious: Yes (Hospitalization, Other)
  Sender: FDA-Public Use
  Company Number: None

PATIENT
  Age: 58 Year
  Sex: Female

DRUGS (42)
  1. VENLAFAXINE [Suspect]
     Active Substance: VENLAFAXINE HYDROCHLORIDE
     Indication: Depression
     Dosage: 75 MILLIGRAM, QH
     Route: 048
     Dates: start: 20161229
  2. VENLAFAXINE [Suspect]
     Active Substance: VENLAFAXINE HYDROCHLORIDE
     Dosage: 150 MILLIGRAM, QD
     Route: 048
     Dates: start: 20160907
  3. VENLAFAXINE [Suspect]
     Active Substance: VENLAFAXINE HYDROCHLORIDE
     Dosage: 225 MG, QD (225 MG, 1X/DAY)
     Route: 048
     Dates: start: 20161128
  4. VENLAFAXINE [Suspect]
     Active Substance: VENLAFAXINE HYDROCHLORIDE
     Dosage: 75 MILLIGRAM
     Route: 048
  5. TREMELIMUMAB [Suspect]
     Active Substance: TREMELIMUMAB
     Indication: Non-small cell lung cancer
     Dosage: 1 MG/KG, CYCLE (ONCE EVERY FOUR WEEKS)
     Route: 042
     Dates: start: 20161104, end: 20161104
  6. TREMELIMUMAB [Suspect]
     Active Substance: TREMELIMUMAB
     Dosage: 1 MG/KG, CYCLE (ONCE EVERY FOUR WEEKS)
     Route: 042
     Dates: start: 20161130, end: 20161130
  7. TREMELIMUMAB [Suspect]
     Active Substance: TREMELIMUMAB
     Dosage: 1 MILLIGRAM/KILOGRAM, 4 WEEK
     Route: 042
     Dates: start: 20161104, end: 20161104
  8. TREMELIMUMAB [Suspect]
     Active Substance: TREMELIMUMAB
     Dosage: 1 MILLIGRAM/KILOGRAM, 4 WEEK
     Route: 042
     Dates: start: 20161130, end: 20161130
  9. DURVALUMAB [Suspect]
     Active Substance: DURVALUMAB
     Indication: Non-small cell lung cancer
     Dosage: 20 MG/KG, CYCLE, ONCE EVERY 4 WEEKS
     Route: 042
     Dates: start: 20161104, end: 20161104
  10. DURVALUMAB [Suspect]
     Active Substance: DURVALUMAB
     Dosage: 20 MG/KG, ONCE EVERY 4 WEEK
     Route: 042
     Dates: start: 20161130, end: 20161130
  11. DURVALUMAB [Suspect]
     Active Substance: DURVALUMAB
     Dosage: 20 MG/KG, 4 WEEK
     Route: 042
     Dates: start: 20161130, end: 20161130
  12. DURVALUMAB [Suspect]
     Active Substance: DURVALUMAB
     Dosage: 20 MG/KG,4 WEEK
     Route: 042
     Dates: start: 20161104, end: 20161104
  13. LACTULOSE [Concomitant]
     Active Substance: LACTULOSE
     Indication: Constipation
     Dosage: 20 MILLIGRAM
     Route: 048
     Dates: start: 20160928
  14. LACTULOSE [Concomitant]
     Active Substance: LACTULOSE
     Dosage: 3 DOSAGE FORM, QD, 1.00 SPOON TID
     Route: 048
     Dates: start: 20160928
  15. LACTULOSE [Concomitant]
     Active Substance: LACTULOSE
     Dosage: 1 DOSAGE FORM, QD, (1.00 SPOON TID)
     Route: 048
     Dates: start: 20160928
  16. SODIUM CITRATE [Concomitant]
     Active Substance: SODIUM CITRATE
     Indication: Constipation
     Dosage: 1 DF, PRN 1.00 MICROENEMA PRN
     Route: 054
     Dates: end: 20160928
  17. GABAPENTIN [Concomitant]
     Active Substance: GABAPENTIN
     Indication: Pain
     Dosage: 40 MILLIGRAM, TID
     Route: 048
     Dates: start: 20160928
  18. GABAPENTIN [Concomitant]
     Active Substance: GABAPENTIN
     Dosage: 400 MILLIGRAM, TID
     Route: 048
     Dates: start: 20160928
  19. GABAPENTIN [Concomitant]
     Active Substance: GABAPENTIN
     Dosage: 40 MILLIGRAM, QD
     Route: 048
     Dates: start: 20160928
  20. SODIUM LAURYL SULFOACETATE [Concomitant]
     Active Substance: SODIUM LAURYL SULFOACETATE
     Indication: Constipation
     Dosage: 1 DOSAGE FORM, CYCLE,(1.00 SPOON TID)
     Route: 054
     Dates: start: 20160928
  21. FENTANYL [Concomitant]
     Active Substance: FENTANYL\FENTANYL CITRATE
     Indication: Pain
     Dosage: 52 GRAM, CYCLE,52 G, CYCLE, 50.00 UG EVERY 72H
     Route: 003
     Dates: start: 20160928
  22. FENTANYL [Concomitant]
     Active Substance: FENTANYL\FENTANYL CITRATE
     Dosage: 52 MICROGRAM, CYCLE,EVERY 72H
     Route: 003
     Dates: start: 20160928
  23. CLOBAZAM [Concomitant]
     Active Substance: CLOBAZAM
     Indication: Depression
     Dosage: 20 MILLIGRAM, PRN
     Route: 048
     Dates: start: 20160907
  24. MORPHINE SULFATE [Concomitant]
     Active Substance: MORPHINE SULFATE
     Indication: Pain
     Dosage: 20 MG, PRN (20.00 MG PRN)
     Route: 048
     Dates: start: 20161104
  25. MORPHINE SULFATE [Concomitant]
     Active Substance: MORPHINE SULFATE
     Dosage: 20 MG, PRN
     Route: 048
     Dates: start: 20160928
  26. MORPHINE SULFATE [Concomitant]
     Active Substance: MORPHINE SULFATE
     Dosage: 20 MG, PRN
     Route: 048
  27. MORPHINE SULFATE [Concomitant]
     Active Substance: MORPHINE SULFATE
     Dosage: 20 MG, PRN
     Route: 048
  28. NYSTATIN [Concomitant]
     Active Substance: NYSTATIN
     Indication: Mucosal inflammation
     Dosage: 24 MILLILITER, QD (6.00 ML QID)
     Route: 048
     Dates: start: 20161117
  29. MIRTAZAPINE [Concomitant]
     Active Substance: MIRTAZAPINE
     Indication: Depression
     Dosage: 30 MILLIGRAM, QD
     Route: 048
     Dates: start: 20160907
  30. MIRTAZAPINE [Concomitant]
     Active Substance: MIRTAZAPINE
     Dosage: 30 MILLIGRAM, QD, 30 MG +5ML
     Route: 065
  31. MIRTAZAPINE [Concomitant]
     Active Substance: MIRTAZAPINE
     Dosage: 30 MILLIGRAM, QD
     Route: 065
  32. SENE [Concomitant]
     Indication: Constipation
     Dosage: 2 DOSAGE FORM, QD,
     Route: 048
     Dates: start: 20160928
  33. METHIMAZOLE [Concomitant]
     Active Substance: METHIMAZOLE
     Indication: Thyroid cyst
     Dosage: 5 MILLIGRAM, QD
     Route: 048
     Dates: start: 20160907
  34. BISACODIL ARENA [Concomitant]
     Indication: Constipation
     Dosage: 2 DOSAGE FORM, QD
     Route: 048
     Dates: start: 20160928
  35. AMITRIPTYLINE HYDROCHLORIDE [Concomitant]
     Active Substance: AMITRIPTYLINE HYDROCHLORIDE
     Indication: Depression
     Dosage: 50 MILLIGRAM, QD (25.00 MG BID)
     Route: 048
     Dates: start: 20160928
  36. SUCRALFATE [Concomitant]
     Active Substance: SUCRALFATE
     Indication: Prophylaxis
     Dosage: 3 DOSAGE FORM, QD
     Route: 048
     Dates: start: 20160928
  37. SUCRALFATE [Concomitant]
     Active Substance: SUCRALFATE
     Dosage: 1 DOSAGE FORM, QD, 1.00 SACHET, QID
     Route: 048
     Dates: start: 20160928
  38. PANTOPRAZOLE [Concomitant]
     Active Substance: PANTOPRAZOLE
     Indication: Prophylaxis
     Dosage: 40 MILLIGRAM, QD
     Route: 048
     Dates: start: 20160928
  39. METHYLPREDNISOLONE [Concomitant]
     Active Substance: METHYLPREDNISOLONE
     Indication: Pain
     Dosage: 0.5 MILLIGRAM, QD
     Route: 048
     Dates: start: 20161021
  40. METHYLPREDNISOLONE [Concomitant]
     Active Substance: METHYLPREDNISOLONE
     Dosage: 0.5 DOSAGE FORM, QD
     Route: 048
     Dates: start: 20161021
  41. METHIMAZOLE [Concomitant]
     Active Substance: METHIMAZOLE
     Indication: Thyroid cyst
     Dosage: UNK
     Route: 048
     Dates: start: 20160907
  42. METHIMAZOLE [Concomitant]
     Active Substance: METHIMAZOLE
     Dosage: 5 MG, QD
     Route: 048
     Dates: start: 20160907

REACTIONS (1)
  - Drug-induced liver injury [Not Recovered/Not Resolved]

NARRATIVE: CASE EVENT DATE: 20161229
